FAERS Safety Report 9030277 (Version 1)
Quarter: 2013Q1

REPORT INFORMATION
  Report Type: Spontaneous
  Country: NL (occurrence: NL)
  Receive Date: 20130122
  Receipt Date: 20130122
  Transmission Date: 20140127
  Serious: Yes (Life-Threatening, Hospitalization)
  Sender: FDA-Public Use
  Company Number: NL-ASTRAZENECA-2013SE03287

PATIENT
  Age: 25407 Day
  Sex: Male

DRUGS (6)
  1. OMEPRAZOL [Suspect]
     Indication: PROPHYLAXIS AGAINST GASTROINTESTINAL ULCER
     Route: 048
     Dates: start: 20121125, end: 201212
  2. ASCAL [Suspect]
     Indication: AORTIC ANEURYSM
     Route: 048
     Dates: start: 20121203
  3. BISOPROLOL [Suspect]
     Indication: AORTIC ANEURYSM
     Route: 048
     Dates: start: 20121204
  4. SIMVASTATIN [Suspect]
     Indication: AORTIC ANEURYSM
     Route: 048
     Dates: start: 20121204
  5. NORMACOL [Concomitant]
     Route: 048
  6. OXAZEPAM [Concomitant]
     Route: 048
     Dates: end: 20121218

REACTIONS (1)
  - Drug hypersensitivity [Recovered/Resolved]
